FAERS Safety Report 24379157 (Version 1)
Quarter: 2024Q3

REPORT INFORMATION
  Report Type: Spontaneous
  Country: US (occurrence: US)
  Receive Date: 20240930
  Receipt Date: 20240930
  Transmission Date: 20241016
  Serious: No
  Sender: AVEVA
  Company Number: US-AVEVA-000741

PATIENT
  Sex: Male

DRUGS (1)
  1. NICOTINE [Suspect]
     Active Substance: NICOTINE
     Indication: Toxicity to various agents
     Dosage: UNK (7 MILLIGRAMS)
     Route: 062

REACTIONS (2)
  - Adverse drug reaction [Unknown]
  - Erythema [Unknown]
